FAERS Safety Report 10954924 (Version 1)
Quarter: 2015Q1

REPORT INFORMATION
  Report Type: Report from Study
  Country: BR (occurrence: BR)
  Receive Date: 20150325
  Receipt Date: 20150325
  Transmission Date: 20150721
  Serious: Yes (Hospitalization, Other)
  Sender: FDA-Public Use
  Company Number: PHHY2015BR034766

PATIENT
  Sex: Female
  Weight: 45 kg

DRUGS (1)
  1. ACLASTA [Suspect]
     Active Substance: ZOLEDRONIC ACID
     Indication: OSTEOPOROSIS
     Dosage: 1 DF, ONCE A YEAR
     Route: 042
     Dates: start: 2013

REACTIONS (3)
  - Wound [Recovering/Resolving]
  - Blood disorder [Recovering/Resolving]
  - Anaemia [Recovering/Resolving]
